FAERS Safety Report 9735941 (Version 2)
Quarter: 2013Q4

REPORT INFORMATION
  Report Type: Report from Study
  Country: US (occurrence: US)
  Receive Date: 20131206
  Receipt Date: 20131226
  Transmission Date: 20140711
  Serious: Yes (Other)
  Sender: FDA-Public Use
  Company Number: US-ACTELION-A-US2013-91847

PATIENT
  Age: 68 Year
  Sex: Female

DRUGS (11)
  1. TRACLEER [Suspect]
     Indication: PULMONARY ARTERIAL HYPERTENSION
     Dosage: UNK
     Route: 048
     Dates: start: 20130912, end: 20131125
  2. ADCIRCA [Concomitant]
  3. AMIODARONE [Concomitant]
  4. FERROUS SULFATE [Concomitant]
  5. HYDROCORTISONE [Concomitant]
  6. LANTUS [Concomitant]
  7. LASIX [Concomitant]
  8. LIPITOR [Concomitant]
  9. NOVOLOG [Concomitant]
  10. PRADAXA [Concomitant]
  11. SERTRALINE [Concomitant]

REACTIONS (2)
  - Lymphoedema [Recovering/Resolving]
  - Oedema [Recovering/Resolving]
